FAERS Safety Report 9603714 (Version 2)
Quarter: 2013Q4

REPORT INFORMATION
  Report Type: Report from Study
  Country: CO (occurrence: CO)
  Receive Date: 20131007
  Receipt Date: 20131021
  Transmission Date: 20140711
  Serious: Yes (Hospitalization)
  Sender: FDA-Public Use
  Company Number: CO-ROCHE-1285591

PATIENT
  Age: 59 Year
  Sex: Female
  Weight: 44 kg

DRUGS (3)
  1. LUCENTIS [Suspect]
     Indication: PRODUCT USED FOR UNKNOWN INDICATION
     Route: 050
     Dates: start: 20130626
  2. INSULIN [Concomitant]
     Indication: DIABETES MELLITUS
  3. LOSARTAN [Concomitant]

REACTIONS (2)
  - Gastric ulcer [Recovered/Resolved]
  - Factitious disorder [Recovered/Resolved]
